FAERS Safety Report 22528046 (Version 1)
Quarter: 2023Q2

REPORT INFORMATION
  Report Type: Report from Study
  Country: LB (occurrence: LB)
  Receive Date: 20230607
  Receipt Date: 20230607
  Transmission Date: 20230721
  Serious: Yes (Disabling)
  Sender: FDA-Public Use
  Company Number: LB-ABBVIE-5277697

PATIENT
  Age: 60 Year
  Sex: Female
  Weight: 55 kg

DRUGS (4)
  1. HUMIRA [Suspect]
     Active Substance: ADALIMUMAB
     Indication: Ankylosing spondylitis
     Dosage: FORM STRENGTH: 40 MILLIGRAM, STOP DATE TEXT: EARLY OCT 2021
     Route: 058
     Dates: start: 20210517, end: 202110
  2. CYPRO-VITA [Concomitant]
     Indication: Product used for unknown indication
     Route: 048
     Dates: start: 20210520
  3. Sputnik V [Concomitant]
     Indication: COVID-19 immunisation
     Dosage: TIME INTERVAL: TOTAL: FIRST DOSE
     Route: 030
     Dates: start: 20210405, end: 20210405
  4. Sputnik V [Concomitant]
     Indication: COVID-19 immunisation
     Dosage: TIME INTERVAL: TOTAL
     Route: 030
     Dates: start: 20210426, end: 20210426

REACTIONS (3)
  - Gait disturbance [Not Recovered/Not Resolved]
  - Back pain [Not Recovered/Not Resolved]
  - Intervertebral disc protrusion [Not Recovered/Not Resolved]

NARRATIVE: CASE EVENT DATE: 20230501
